FAERS Safety Report 23296885 (Version 1)
Quarter: 2023Q4

REPORT INFORMATION
  Report Type: Spontaneous
  Country: CA (occurrence: CA)
  Receive Date: 20231214
  Receipt Date: 20231214
  Transmission Date: 20240110
  Serious: Yes (Other)
  Sender: FDA-Public Use
  Company Number: CA-SA-SAC20231212000116

PATIENT
  Age: 49 Year
  Sex: Male

DRUGS (12)
  1. KEVZARA [Suspect]
     Active Substance: SARILUMAB
     Indication: Rheumatoid arthritis
     Dosage: UNK
     Route: 065
  2. ACTEMRA [Suspect]
     Active Substance: TOCILIZUMAB
     Indication: Rheumatoid arthritis
     Dosage: 162.0 MG, QOW
     Route: 058
  3. ETANERCEPT [Suspect]
     Active Substance: ETANERCEPT
     Indication: Rheumatoid arthritis
     Dosage: UNK
  4. RITUXIMAB [Suspect]
     Active Substance: RITUXIMAB
     Indication: Rheumatoid arthritis
     Dosage: UNK
  5. SULFASALAZINE [Suspect]
     Active Substance: SULFASALAZINE
     Indication: Rheumatoid arthritis
     Dosage: UNK
  6. LORAZEPAM [Concomitant]
     Active Substance: LORAZEPAM
     Dosage: UNK
  7. NORTRIPTYLINE HYDROCHLORIDE [Concomitant]
     Active Substance: NORTRIPTYLINE HYDROCHLORIDE
     Dosage: UNK
  8. PREDNISONE [Concomitant]
     Active Substance: PREDNISONE
     Indication: Bursitis
     Dosage: UNK
  9. PREDNISONE [Concomitant]
     Active Substance: PREDNISONE
     Indication: Synovitis
  10. RINVOQ [Concomitant]
     Active Substance: UPADACITINIB
     Indication: Rheumatoid arthritis
     Dosage: UNK
  11. DULOXETINE [Concomitant]
     Active Substance: DULOXETINE
     Dosage: UNK
  12. TYLENOL [Concomitant]
     Active Substance: ACETAMINOPHEN
     Dosage: UNK

REACTIONS (19)
  - Arthralgia [Unknown]
  - Bursitis [Unknown]
  - Drug hypersensitivity [Unknown]
  - Enthesopathy [Unknown]
  - Fournier^s gangrene [Unknown]
  - Haemorrhoids [Unknown]
  - Inflammatory pain [Unknown]
  - Joint noise [Unknown]
  - Joint swelling [Unknown]
  - Lymphadenopathy [Unknown]
  - Musculoskeletal stiffness [Unknown]
  - Necrotising fasciitis [Unknown]
  - Osteoarthritis [Unknown]
  - Pulmonary mass [Unknown]
  - Swelling face [Unknown]
  - Synovitis [Unknown]
  - Tendon disorder [Unknown]
  - Drug intolerance [Unknown]
  - Drug ineffective [Unknown]
